FAERS Safety Report 15840095 (Version 1)
Quarter: 2019Q1

REPORT INFORMATION
  Report Type: Spontaneous
  Country: US (occurrence: US)
  Receive Date: 20190117
  Receipt Date: 20190117
  Transmission Date: 20190417
  Serious: No
  Sender: FDA-Public Use
  Company Number: US-GILEAD-2019-0385160

PATIENT
  Age: 59 Year
  Sex: Male

DRUGS (3)
  1. VRAYLAR [Concomitant]
     Active Substance: CARIPRAZINE
  2. BIKTARVY [Suspect]
     Active Substance: BICTEGRAVIR SODIUM\EMTRICITABINE\TENOFOVIR ALAFENAMIDE FUMARATE
     Indication: PRODUCT USED FOR UNKNOWN INDICATION
     Dosage: UNK
     Route: 065
     Dates: start: 2018
  3. ^LEMITRIL^ [Concomitant]

REACTIONS (2)
  - Arthralgia [Unknown]
  - Viral load decreased [Unknown]
